FAERS Safety Report 12655751 (Version 3)
Quarter: 2016Q4

REPORT INFORMATION
  Report Type: Spontaneous
  Country: US (occurrence: US)
  Receive Date: 20160816
  Receipt Date: 20161111
  Transmission Date: 20170207
  Serious: Yes (Hospitalization, Other)
  Sender: FDA-Public Use
  Company Number: US-PFIZER INC-2016379689

PATIENT
  Age: 66 Year
  Sex: Male
  Weight: 88 kg

DRUGS (16)
  1. AMLODIPINE BESILATE [Concomitant]
     Active Substance: AMLODIPINE BESYLATE
     Indication: BLOOD PRESSURE ABNORMAL
     Dosage: 10 MG, 1X/DAY (10MG, ONCE A DAY IN THE MORNING)
  2. ASPIRIN. [Concomitant]
     Active Substance: ASPIRIN
     Dosage: 81 MG, DAILY (81MG ONCE IN THE EVENING)
     Route: 048
  3. VYTORIN [Concomitant]
     Active Substance: EZETIMIBE\SIMVASTATIN
     Dosage: [EZETINIB 10MG]/[SIMVASTATIN 40 MG], 1X/DAY
     Route: 048
  4. ZANTAC [Concomitant]
     Active Substance: RANITIDINE HYDROCHLORIDE
     Dosage: 150 MG, AS NEEDED
     Route: 048
  5. LISINOPRIL. [Concomitant]
     Active Substance: LISINOPRIL
     Indication: BLOOD PRESSURE ABNORMAL
     Dosage: 40 MG, 2X/DAY
  6. HUMALOG [Concomitant]
     Active Substance: INSULIN LISPRO
     Indication: DIABETES MELLITUS
     Dosage: THREE TIMES DAILY 51 UNITS TOTAL ON SLIDING SCALE
     Route: 058
  7. SUTENT [Suspect]
     Active Substance: SUNITINIB MALATE
     Indication: RENAL CELL CARCINOMA
     Dosage: 50 MG, CYCLIC (DAILY, ONE CAPSULE IN MORNING, 28 DAYS ON AND 2 WEEKS OFF)
     Route: 048
     Dates: start: 20160709, end: 20160803
  8. PRAVASTATIN. [Concomitant]
     Active Substance: PRAVASTATIN
     Indication: BLOOD CHOLESTEROL ABNORMAL
     Dosage: 80 MG, 1X/DAY (80MG, ONCE A DAY IN EVENING)
  9. LEVEMIR [Concomitant]
     Active Substance: INSULIN DETEMIR
     Indication: DIABETES MELLITUS
     Dosage: 19 UNITS IN MORNING AND 36 UNITS AT SUPPER TIME INJECTED
     Route: 058
  10. NORVASC [Concomitant]
     Active Substance: AMLODIPINE BESYLATE
     Dosage: 10 MG, 1X/DAY
     Route: 048
  11. GLUCAGON EMERGENCY [Concomitant]
     Indication: BLOOD GLUCOSE DECREASED
     Dosage: 1 MG, AS NEEDED
     Route: 030
  12. TENORMIN [Concomitant]
     Active Substance: ATENOLOL
     Dosage: 100 MG, 1X/DAY
     Route: 048
  13. NITROSTAT [Concomitant]
     Active Substance: NITROGLYCERIN
     Indication: CHEST PAIN
     Dosage: 0.4 MG, AS NEEDED(PLACE 1 TABLET UNDER THE TONGUE EVERY 5 MINUTE AS NEEDED FOR CHEST PAIN)
     Route: 060
  14. SUTENT [Suspect]
     Active Substance: SUNITINIB MALATE
     Dosage: 50 MG, CYCLIC(50 MG DAILY, 3 WKS. ON, 3 WKS. OFF)
  15. ATENOLOL. [Concomitant]
     Active Substance: ATENOLOL
     Indication: BLOOD PRESSURE ABNORMAL
     Dosage: 100 MG, 1X/DAY (100MG ONCE A DAY IN THE EVENING)
  16. MONOPRIL [Concomitant]
     Active Substance: FOSINOPRIL SODIUM
     Dosage: 40 MG, 2X/DAY
     Route: 048

REACTIONS (4)
  - Diarrhoea [Not Recovered/Not Resolved]
  - Hypertension [Not Recovered/Not Resolved]
  - Nausea [Not Recovered/Not Resolved]
  - Dyspepsia [Recovered/Resolved]

NARRATIVE: CASE EVENT DATE: 20160715
